FAERS Safety Report 9824442 (Version 2)
Quarter: 2014Q1

REPORT INFORMATION
  Report Type: Spontaneous
  Country: US (occurrence: US)
  Receive Date: 20140116
  Receipt Date: 20140116
  Transmission Date: 20141002
  Serious: Yes (Hospitalization)
  Sender: FDA-Public Use
  Company Number: US-GILEAD-2011-0039579

PATIENT
  Age: 55 Year
  Sex: Female

DRUGS (15)
  1. LETAIRIS [Suspect]
     Indication: PULMONARY HYPERTENSION
     Route: 048
     Dates: start: 20110525
  2. LETAIRIS [Suspect]
     Indication: CHRONIC OBSTRUCTIVE PULMONARY DISEASE
     Route: 048
  3. TESSALON PERLE [Concomitant]
  4. SPIRIVA [Concomitant]
  5. LISINOPRIL [Concomitant]
  6. SIMVASTATIN [Concomitant]
  7. BURINEX [Concomitant]
  8. ZAROXOLYN [Concomitant]
  9. ALDACTONE                          /00006201/ [Concomitant]
  10. POTASSIUM CHLORIDE [Concomitant]
  11. XANAX [Concomitant]
  12. KLONOPIN [Concomitant]
  13. PRILOSEC                           /00661201/ [Concomitant]
  14. ACETYLSALICYLIC ACID/SALICYLAMIDE/PARACETAMOL/CAFFEINE [Concomitant]
  15. ASPIRIN [Concomitant]

REACTIONS (3)
  - Drug ineffective [Unknown]
  - Dyspnoea [Unknown]
  - Fluid retention [Unknown]
